FAERS Safety Report 10161326 (Version 1)
Quarter: 2014Q2

REPORT INFORMATION
  Report Type: Spontaneous
  Country: US (occurrence: US)
  Receive Date: 20140509
  Receipt Date: 20140509
  Transmission Date: 20141212
  Serious: Yes (Other)
  Sender: FDA-Public Use
  Company Number: US-AMGEN-USASP2014033375

PATIENT
  Sex: 0

DRUGS (3)
  1. ENBREL [Suspect]
     Indication: PRODUCT USED FOR UNKNOWN INDICATION
     Dosage: UNK
     Route: 065
  2. PROLIA [Concomitant]
     Indication: PSORIASIS
     Dosage: UNK
  3. PROLIA [Concomitant]
     Indication: PSORIATIC ARTHROPATHY

REACTIONS (1)
  - Basal cell carcinoma [Unknown]
